FAERS Safety Report 21066082 (Version 1)
Quarter: 2022Q3

REPORT INFORMATION
  Report Type: Spontaneous
  Country: CO (occurrence: CO)
  Receive Date: 20220711
  Receipt Date: 20220711
  Transmission Date: 20221027
  Serious: Yes (Hospitalization, Other)
  Sender: FDA-Public Use
  Company Number: CO-SA-SAC20220708001047

PATIENT
  Age: 39 Year
  Sex: Female
  Weight: 28 kg

DRUGS (1)
  1. DUPILUMAB [Suspect]
     Active Substance: DUPILUMAB
     Indication: Dermatitis atopic
     Dosage: 300 MG, Q15D
     Route: 058
     Dates: start: 20210903

REACTIONS (7)
  - Arteriovenous fistula occlusion [Unknown]
  - Thrombosis [Unknown]
  - Pain in extremity [Unknown]
  - Pyrexia [Unknown]
  - Fluid retention [Unknown]
  - Turner^s syndrome [Unknown]
  - Swelling face [Not Recovered/Not Resolved]
